FAERS Safety Report 5646124-2 (Version None)
Quarter: 2008Q1

REPORT INFORMATION
  Report Type: 
  Country: None (occurrence: None)
  Receive Date: 20080131
  Receipt Date: 20071102
  Transmission Date: 20080703
  Serious: Yes (Hospitalization)
  Sender: FDA-Public Use
  Company Number: 163-21880-07110172

PATIENT
  Age: 82 Year
  Sex: Female

DRUGS (4)
  1. REVLIMID [Suspect]
     Indication: MULTIPLE MYELOMA
     Dosage: 10 MG, DAILY
     Dates: start: 20071001, end: 20071101
  2. DEXAMETHASONE TAB [Concomitant]
  3. ASPIRIN [Concomitant]
  4. COUMADIN [Concomitant]

REACTIONS (1)
  - PULMONARY EMBOLISM [None]
